FAERS Safety Report 5400832-7 (Version None)
Quarter: 2007Q3

REPORT INFORMATION
  Report Type: 
  Country: None (occurrence: None)
  Receive Date: 20070730
  Receipt Date: 20070718
  Transmission Date: 20080115
  Serious: Yes (Other)
  Sender: FDA-Public Use
  Company Number: US-PFIZER INC-2007060548

PATIENT
  Sex: Male

DRUGS (4)
  1. DILANTIN [Suspect]
     Dates: start: 20061106, end: 20070201
  2. ARICEPT [Suspect]
     Dates: start: 20070226, end: 20070619
  3. NEURONTIN [Suspect]
  4. CELEXA [Concomitant]

REACTIONS (5)
  - APALLIC SYNDROME [None]
  - DIARRHOEA [None]
  - FLATULENCE [None]
  - NAUSEA [None]
  - VOMITING [None]
